FAERS Safety Report 10331272 (Version 1)
Quarter: 2014Q3

REPORT INFORMATION
  Report Type: Spontaneous
  Country: US (occurrence: US)
  Receive Date: 20140722
  Receipt Date: 20140722
  Transmission Date: 20150326
  Serious: Yes (Life-Threatening, Hospitalization)
  Sender: FDA-Public Use
  Company Number: US-ROXANE LABORATORIES, INC.-2014-RO-01091RO

PATIENT
  Age: 67 Year
  Sex: Male

DRUGS (2)
  1. CYCLOPHOSPHAMIDE TABLETS USP [Suspect]
     Active Substance: CYCLOPHOSPHAMIDE
     Indication: PRODUCT USED FOR UNKNOWN INDICATION
     Route: 065
  2. PREDNISONE. [Suspect]
     Active Substance: PREDNISONE
     Indication: EOSINOPHILIC FASCIITIS
     Dosage: 20 MG
     Route: 065

REACTIONS (3)
  - Eosinophilic fasciitis [Unknown]
  - Cystitis haemorrhagic [Unknown]
  - Bladder cancer [Unknown]
